FAERS Safety Report 5645268-9 (Version None)
Quarter: 2008Q1

REPORT INFORMATION
  Report Type: 
  Country: None (occurrence: None)
  Receive Date: 20080229
  Receipt Date: 20080214
  Transmission Date: 20080703
  Serious: Yes (Hospitalization)
  Sender: FDA-Public Use
  Company Number: FR-GENENTECH-256287

PATIENT
  Sex: Female

DRUGS (11)
  1. HERCEPTIN [Suspect]
     Indication: BREAST CANCER
     Dosage: 8 MG/KG, 1/MONTH
     Route: 042
     Dates: start: 20071219
  2. TAXOL [Suspect]
     Indication: BREAST CANCER
     Dosage: UNK, DAYS1,8,15
     Route: 042
     Dates: start: 20071220
  3. AMLOR [Concomitant]
     Indication: DRUG USE FOR UNKNOWN INDICATION
  4. ELISOR [Concomitant]
     Indication: DRUG USE FOR UNKNOWN INDICATION
  5. KYTRIL [Concomitant]
     Indication: DRUG USE FOR UNKNOWN INDICATION
  6. OGAST [Concomitant]
     Indication: DRUG USE FOR UNKNOWN INDICATION
  7. POLARAMINE [Concomitant]
     Indication: DRUG USE FOR UNKNOWN INDICATION
  8. PROCYANIDOLIC OLIGOMERS [Concomitant]
     Indication: DRUG USE FOR UNKNOWN INDICATION
  9. SOLUPRED [Concomitant]
     Indication: DRUG USE FOR UNKNOWN INDICATION
  10. VOGALENE [Concomitant]
     Indication: DRUG USE FOR UNKNOWN INDICATION
  11. XANAX [Concomitant]
     Indication: DRUG USE FOR UNKNOWN INDICATION

REACTIONS (2)
  - DERMATITIS EXFOLIATIVE [None]
  - EYELID OEDEMA [None]
